FAERS Safety Report 16634942 (Version 2)
Quarter: 2019Q3

REPORT INFORMATION
  Report Type: Spontaneous
  Country: US (occurrence: US)
  Receive Date: 20190726
  Receipt Date: 20190804
  Transmission Date: 20191004
  Serious: No
  Sender: FDA-Public Use
  Company Number: US-ASTRAZENECA-2019SF05904

PATIENT
  Age: 32 Year
  Sex: Female
  Weight: 73 kg

DRUGS (5)
  1. IBUPROFEN. [Suspect]
     Active Substance: IBUPROFEN
     Indication: ARTHROPATHY
     Dosage: 600 MG, AS NEEDED (600MG, ONE PILL EVERY 6 HOURS OR AS NEEDED)
     Route: 048
     Dates: start: 20190715
  2. NEXIUM 24HR [Suspect]
     Active Substance: ESOMEPRAZOLE MAGNESIUM
     Indication: GASTRIC ULCER
     Route: 048
     Dates: start: 201906
  3. IBUPROFEN. [Suspect]
     Active Substance: IBUPROFEN
     Indication: TOOTH DISORDER
     Dosage: 600 MG, AS NEEDED (600MG, ONE PILL EVERY 6 HOURS OR AS NEEDED)
     Route: 048
     Dates: start: 20190715
  4. NEXIUM 24HR [Suspect]
     Active Substance: ESOMEPRAZOLE MAGNESIUM
     Indication: DYSPEPSIA
     Route: 048
     Dates: start: 201906
  5. DEPO-PROVERA [Concomitant]
     Active Substance: MEDROXYPROGESTERONE ACETATE

REACTIONS (4)
  - Ligament sprain [Not Recovered/Not Resolved]
  - Product use issue [Unknown]
  - Fall [Not Recovered/Not Resolved]
  - Off label use [Unknown]

NARRATIVE: CASE EVENT DATE: 2019
